FAERS Safety Report 6416080-8 (Version None)
Quarter: 2009Q4

REPORT INFORMATION
  Report Type: 
  Country: None (occurrence: None)
  Receive Date: 20091023
  Receipt Date: 20091017
  Transmission Date: 20100525
  Serious: Yes (Hospitalization)
  Sender: FDA-Public Use
  Company Number: 408917

PATIENT
  Age: 37 Year
  Sex: Female

DRUGS (6)
  1. EPIRUBICIN [Suspect]
     Indication: BREAST CANCER FEMALE
     Dates: start: 20060401
  2. TAXOTERE [Suspect]
     Indication: BREAST CANCER FEMALE
     Dates: start: 20060401
  3. ENDOXAN /00021101/ [Suspect]
     Indication: BREAST CANCER FEMALE
     Dates: start: 20060401
  4. ZOLADEX [Suspect]
     Indication: HORMONE THERAPY
  5. TAMOXIFEN [Suspect]
     Indication: HORMONE THERAPY
     Dates: start: 20060401
  6. ORAL ANTIDIABETICS [Concomitant]

REACTIONS (12)
  - ABSCESS [None]
  - BONE INFARCTION [None]
  - CELLULITIS [None]
  - DIABETES MELLITUS [None]
  - FEBRILE NEUTROPENIA [None]
  - OSTEOMYELITIS [None]
  - OSTEONECROSIS [None]
  - SKIN GRAFT [None]
  - STAPHYLOCOCCAL INFECTION [None]
  - WHITE BLOOD CELL COUNT DECREASED [None]
  - WOUND DEHISCENCE [None]
  - WOUND INFECTION [None]
